FAERS Safety Report 8973181 (Version 2)
Quarter: 2012Q4

REPORT INFORMATION
  Report Type: 
  Country: BR (occurrence: BR)
  Receive Date: 20121219
  Receipt Date: 20121220
  Transmission Date: 20130627
  Serious: Yes (Hospitalization, Other)
  Sender: FDA-Public Use
  Company Number: BR-JNJFOC-20121206488

PATIENT
  Age: 39 Year
  Sex: Female
  Weight: 90 kg

DRUGS (2)
  1. XARELTO [Suspect]
     Indication: THROMBOSIS
     Dosage: Start date: 14-NOV-2012
     Route: 048
  2. DROSPIRENONE W/ETHINYLESTRADIOL [Suspect]
     Indication: CONTRACEPTION
     Route: 048
     Dates: start: 2008, end: 201210

REACTIONS (3)
  - Thrombosis [Not Recovered/Not Resolved]
  - Ankle fracture [Recovered/Resolved]
  - Underdose [Unknown]
